FAERS Safety Report 22391314 (Version 1)
Quarter: 2023Q2

REPORT INFORMATION
  Report Type: Other
  Country: JP (occurrence: None)
  Receive Date: 20230601
  Receipt Date: 20230601
  Transmission Date: 20230722
  Serious: Yes (Other)
  Sender: FDA-Public Use
  Company Number: JP-ROCHE-3357637

PATIENT

DRUGS (3)
  1. MYCOPHENOLATE MOFETIL [Suspect]
     Active Substance: MYCOPHENOLATE MOFETIL
     Indication: Autoimmune hepatitis
     Route: 065
  2. PREDNISOLONE [Concomitant]
     Active Substance: PREDNISOLONE
  3. AZATHIOPRINE [Concomitant]
     Active Substance: AZATHIOPRINE

REACTIONS (2)
  - Liver injury [Unknown]
  - Diarrhoea [Unknown]
